FAERS Safety Report 17890030 (Version 1)
Quarter: 2020Q2

REPORT INFORMATION
  Report Type: Spontaneous
  Country: IT (occurrence: IT)
  Receive Date: 20200612
  Receipt Date: 20200612
  Transmission Date: 20200714
  Serious: Yes (Death, Other)
  Sender: FDA-Public Use
  Company Number: IT-ASTRAZENECA-2020SE71933

PATIENT
  Age: 55 Year
  Sex: Female

DRUGS (5)
  1. OLAPARIB. [Suspect]
     Active Substance: OLAPARIB
     Indication: OVARIAN CANCER
     Route: 048
     Dates: start: 201707, end: 201804
  2. BEVACIZUMAB. [Suspect]
     Active Substance: BEVACIZUMAB
     Indication: OVARIAN CANCER
     Dosage: A TOTAL OF 22 CYCLES15.0MG/KG UNKNOWN
     Dates: start: 201602, end: 201701
  3. CARBOPLATIN. [Suspect]
     Active Substance: CARBOPLATIN
     Indication: OVARIAN CANCER
     Dosage: AUC 4 (ON DAY 1); SIX CYCLES TOTAL
     Dates: start: 201602, end: 201606
  4. GEMCITABINE. [Suspect]
     Active Substance: GEMCITABINE
     Indication: OVARIAN CANCER
     Dosage: ON DAYS 1 AND 8; SIX CYCLES TOTAL
     Dates: start: 201602, end: 201606
  5. LIPOSOMAL DOXORUBICIN [Suspect]
     Active Substance: DOXORUBICIN HYDROCHLORIDE
     Indication: OVARIAN CANCER
     Dosage: STOPPED AFTER 2 CYCLES40.0MG/M2 UNKNOWN
     Dates: start: 201808

REACTIONS (3)
  - Drug resistance [Unknown]
  - BRCA2 gene mutation [Unknown]
  - Malignant neoplasm progression [Unknown]
